FAERS Safety Report 4364805-8 (Version None)
Quarter: 2004Q2

REPORT INFORMATION
  Report Type: 
  Country: None (occurrence: None)
  Receive Date: 20040526
  Receipt Date: 20040217
  Transmission Date: 20050107
  Serious: No
  Sender: FDA-Public Use
  Company Number: US-GLAXOSMITHKLINE-A0498531A

PATIENT
  Age: 15 Year
  Sex: Female

DRUGS (3)
  1. LOTRONEX [Suspect]
     Indication: IRRITABLE BOWEL SYNDROME
     Dosage: 1TAB PER DAY
     Route: 048
  2. ZOLOFT [Concomitant]
  3. NEXIUM [Concomitant]

REACTIONS (1)
  - ALOPECIA [None]
